FAERS Safety Report 14284211 (Version 1)
Quarter: 2017Q4

REPORT INFORMATION
  Report Type: Report from Study
  Country: CA (occurrence: CA)
  Receive Date: 20171214
  Receipt Date: 20171214
  Transmission Date: 20180321
  Serious: Yes (Hospitalization)
  Sender: FDA-Public Use
  Company Number: CA-UCBSA-2017034898

PATIENT
  Age: 31 Year
  Sex: Female

DRUGS (4)
  1. CERTOLIZUMAB PEGOL ASP [Suspect]
     Active Substance: CERTOLIZUMAB PEGOL
     Indication: ANKYLOSING SPONDYLITIS
     Dosage: 400 MG, EV 2 WEEKS(QOW) X 3
     Route: 058
     Dates: start: 20170227, end: 2017
  2. TYLENOL [Concomitant]
     Active Substance: ACETAMINOPHEN
  3. CERTOLIZUMAB PEGOL ASP [Suspect]
     Active Substance: CERTOLIZUMAB PEGOL
     Dosage: 200 MG, EV 2 WEEKS(QOW)
     Route: 058
     Dates: start: 2017
  4. NAPROXEN. [Concomitant]
     Active Substance: NAPROXEN

REACTIONS (6)
  - Drug dose omission [Unknown]
  - Oropharyngeal pain [Unknown]
  - Arthralgia [Unknown]
  - Surgery [Unknown]
  - Pain [Unknown]
  - Productive cough [Unknown]

NARRATIVE: CASE EVENT DATE: 2017
